FAERS Safety Report 13838362 (Version 2)
Quarter: 2017Q3

REPORT INFORMATION
  Report Type: Spontaneous
  Country: US (occurrence: US)
  Receive Date: 20170807
  Receipt Date: 20170810
  Transmission Date: 20171127
  Serious: Yes (Other)
  Sender: FDA-Public Use
  Company Number: US-THE MEDICINES COMPANY-US-MDCO-17-00393

PATIENT
  Age: 79 Year
  Sex: Male

DRUGS (1)
  1. ORBACTIV [Suspect]
     Active Substance: ORITAVANCIN
     Indication: CELLULITIS
     Dosage: NOT REPORTED
     Route: 041
     Dates: start: 20170802, end: 20170802

REACTIONS (6)
  - Urticaria [Unknown]
  - Acute myocardial infarction [Recovering/Resolving]
  - Heart rate irregular [Unknown]
  - Vomiting [Unknown]
  - Muscle spasms [Unknown]
  - Oxygen saturation decreased [Unknown]

NARRATIVE: CASE EVENT DATE: 20170802
